FAERS Safety Report 9381657 (Version 1)
Quarter: 2013Q3

REPORT INFORMATION
  Report Type: Spontaneous
  Country: JP (occurrence: JP)
  Receive Date: 20130703
  Receipt Date: 20130703
  Transmission Date: 20140515
  Serious: Yes (Hospitalization)
  Sender: FDA-Public Use
  Company Number: JP-JNJFOC-20130616102

PATIENT
  Age: 51 Year
  Sex: Female

DRUGS (20)
  1. DOXORUBICIN HYDROCHLORIDE [Suspect]
     Indication: BREAST CANCER METASTATIC
     Route: 042
  2. DOXORUBICIN HYDROCHLORIDE [Suspect]
     Indication: BREAST CANCER METASTATIC
     Route: 042
  3. DOXORUBICIN HYDROCHLORIDE [Suspect]
     Indication: BREAST CANCER METASTATIC
     Route: 042
  4. DOXORUBICIN HYDROCHLORIDE [Suspect]
     Indication: BREAST CANCER METASTATIC
     Dosage: 4TH CYCLE
     Route: 042
  5. DOXORUBICIN HYDROCHLORIDE [Suspect]
     Indication: BREAST CANCER METASTATIC
     Dosage: 4TH CYCLE
     Route: 042
  6. DOXORUBICIN HYDROCHLORIDE [Suspect]
     Indication: BREAST CANCER METASTATIC
     Dosage: 2ND CYCLE ALMOST MONTH AFTER 1ST CYCLE
     Route: 042
  7. DOXORUBICIN HYDROCHLORIDE [Suspect]
     Indication: BREAST CANCER METASTATIC
     Dosage: 3RD CYCLE: 20 DAYS AFTER SECOND CYCLE
     Route: 042
  8. DOCETAXEL [Suspect]
     Indication: BREAST CANCER METASTATIC
     Dosage: 4TH CYCLE
     Route: 065
  9. DOCETAXEL [Suspect]
     Indication: BREAST CANCER METASTATIC
     Route: 065
  10. DOCETAXEL [Suspect]
     Indication: BREAST CANCER METASTATIC
     Route: 065
  11. DOCETAXEL [Suspect]
     Indication: BREAST CANCER METASTATIC
     Route: 065
  12. DOCETAXEL [Suspect]
     Indication: BREAST CANCER METASTATIC
     Dosage: 3RD CYCLE: 20 DAYS AFTER SECOND CYCLE
     Route: 065
  13. DOCETAXEL [Suspect]
     Indication: BREAST CANCER METASTATIC
     Route: 065
  14. DOCETAXEL [Suspect]
     Indication: BREAST CANCER METASTATIC
     Dosage: 2ND CYCLE ALMOST MONTH AFTER 1ST CYCLE
     Route: 065
  15. GRANISETRON [Concomitant]
     Indication: PROPHYLAXIS OF NAUSEA AND VOMITING
     Route: 042
  16. GRANISETRON [Concomitant]
     Indication: PROPHYLAXIS OF NAUSEA AND VOMITING
     Dosage: (DAY 1-6)
     Route: 042
  17. METHYLPREDNISOLONE [Concomitant]
     Indication: PROPHYLAXIS OF NAUSEA AND VOMITING
     Route: 042
  18. DEXAMETHASONE [Concomitant]
     Indication: PROPHYLAXIS OF NAUSEA AND VOMITING
     Dosage: (DAY BEFORE CHEMOTHERAPY-DAY 5)
     Route: 048
  19. PROCHLORPERAZINE [Concomitant]
     Indication: PROPHYLAXIS OF NAUSEA AND VOMITING
     Dosage: (DAY 1-6)
     Route: 048
  20. DOMPERIDONE [Concomitant]
     Indication: PROPHYLAXIS OF NAUSEA AND VOMITING
     Dosage: (FROM THE DAY BEFORE CHEMOTHERAPY)
     Route: 065

REACTIONS (5)
  - General physical condition abnormal [Recovered/Resolved]
  - Vomiting [Recovered/Resolved]
  - Nausea [Recovered/Resolved]
  - Diarrhoea [Unknown]
  - Insomnia [Recovered/Resolved]
